FAERS Safety Report 4266213-7 (Version None)
Quarter: 2004Q1

REPORT INFORMATION
  Report Type: 
  Country: None (occurrence: None)
  Receive Date: 20040106
  Receipt Date: 20031222
  Transmission Date: 20041129
  Serious: Yes (Death, Hospitalization)
  Sender: FDA-Public Use
  Company Number: 2003GB03378

PATIENT
  Age: 24 Year
  Sex: Female
  Weight: 59.5 kg

DRUGS (5)
  1. ATENOLOL [Suspect]
     Dosage: 350 MG ONCE PO
     Route: 048
     Dates: start: 20031122, end: 20031122
  2. ANADIN PARACETAMOL [Suspect]
     Dosage: 79 DF ONCE PO
     Route: 048
     Dates: start: 20031122, end: 20031122
  3. ASPIRIN [Suspect]
     Dosage: 79 DF ONCE PO
     Route: 048
     Dates: start: 20031122, end: 20031122
  4. EFFEXOR [Suspect]
     Dosage: 600 MG ONCE PO
     Route: 048
     Dates: start: 20031122, end: 20031122
  5. SERTRALINE HCL [Suspect]
     Dosage: 14000 MG ONCE PO
     Route: 048
     Dates: start: 20031122, end: 20031122

REACTIONS (19)
  - AGITATION [None]
  - ALCOHOL USE [None]
  - CARDIAC ARREST [None]
  - COMPLETED SUICIDE [None]
  - CYANOSIS [None]
  - DEPRESSED LEVEL OF CONSCIOUSNESS [None]
  - DISORIENTATION [None]
  - FEELING ABNORMAL [None]
  - GRAND MAL CONVULSION [None]
  - HYPOTENSION [None]
  - MALAISE [None]
  - NAUSEA [None]
  - OVERDOSE [None]
  - PERIPHERAL COLDNESS [None]
  - PERSONALITY DISORDER [None]
  - RETCHING [None]
  - SEROTONIN SYNDROME [None]
  - TACHYCARDIA [None]
  - VENTRICULAR TACHYCARDIA [None]
